FAERS Safety Report 5066262-5 (Version None)
Quarter: 2006Q3

REPORT INFORMATION
  Report Type: 
  Country: None (occurrence: None)
  Receive Date: 20060801
  Receipt Date: 20060721
  Transmission Date: 20061208
  Serious: Yes (Hospitalization)
  Sender: FDA-Public Use
  Company Number: FR-JNJFOC-20060506333

PATIENT
  Sex: Male
  Weight: 100 kg

DRUGS (3)
  1. REMICADE [Suspect]
     Indication: RHEUMATOID ARTHRITIS
     Route: 042
  2. ARAVA [Concomitant]
     Indication: RHEUMATOID ARTHRITIS
     Route: 065
  3. NSAIDS [Concomitant]
     Route: 065

REACTIONS (6)
  - DIVERTICULAR PERFORATION [None]
  - ENTEROVESICAL FISTULA [None]
  - GASTROINTESTINAL NECROSIS [None]
  - PERITONITIS [None]
  - RENAL FAILURE [None]
  - SEPTIC SHOCK [None]
